FAERS Safety Report 6998803-2 (Version None)
Quarter: 2010Q3

REPORT INFORMATION
  Report Type: 
  Country: None (occurrence: None)
  Receive Date: 20100920
  Receipt Date: 20100511
  Transmission Date: 20110219
  Serious: No
  Sender: FDA-Public Use
  Company Number: US-ASTRAZENECA-2007UW02262

PATIENT
  Age: 14794 Day
  Sex: Female
  Weight: 85.7 kg

DRUGS (2)
  1. SEROQUEL [Suspect]
     Indication: BIPOLAR DISORDER
     Route: 048
     Dates: start: 20031101, end: 20040701
  2. ABILIFY [Concomitant]
     Dates: start: 20040416, end: 20040515

REACTIONS (9)
  - ANAL FISTULA [None]
  - BLOOD TRIGLYCERIDES INCREASED [None]
  - FAECAL INCONTINENCE [None]
  - LARYNGITIS [None]
  - OROPHARYNGEAL PAIN [None]
  - PROCTALGIA [None]
  - RECTAL HAEMORRHAGE [None]
  - RESPIRATORY TRACT INFECTION [None]
  - TYPE 2 DIABETES MELLITUS [None]
